FAERS Safety Report 22144776 (Version 1)
Quarter: 2023Q1

REPORT INFORMATION
  Report Type: Spontaneous
  Country: KP (occurrence: KP)
  Receive Date: 20230328
  Receipt Date: 20230328
  Transmission Date: 20230418
  Serious: Yes (Other)
  Sender: FDA-Public Use
  Company Number: KP-PADAGIS-2023PAD00379

PATIENT

DRUGS (2)
  1. IMIQUIMOD [Suspect]
     Active Substance: IMIQUIMOD
     Indication: Bowenoid papulosis
     Dosage: UNK
     Route: 061
  2. CARBON DIOXIDE [Suspect]
     Active Substance: CARBON DIOXIDE
     Indication: Bowenoid papulosis
     Dosage: UNK
     Route: 065

REACTIONS (2)
  - Therapy partial responder [Unknown]
  - Product use in unapproved indication [Unknown]
